FAERS Safety Report 4640457-4 (Version None)
Quarter: 2005Q2

REPORT INFORMATION
  Report Type: 
  Country: None (occurrence: None)
  Receive Date: 20050419
  Receipt Date: 20050406
  Transmission Date: 20051028
  Serious: Yes (Hospitalization, Other)
  Sender: FDA-Public Use
  Company Number: 2005056194

PATIENT
  Weight: 63.5036 kg

DRUGS (4)
  1. ZYRTEC [Suspect]
     Indication: HYPERSENSITIVITY
     Dosage: 10 MG (10 MG, 1 IN 1 D), ORAL
     Route: 048
     Dates: start: 20000101
  2. ZYRTEC-D 12 HOUR [Suspect]
     Indication: FACIAL PAIN
     Dosage: PRN, ORAL
     Route: 048
     Dates: start: 20030401
  3. ZYRTEC-D 12 HOUR [Suspect]
     Indication: SINUS CONGESTION
     Dosage: PRN, ORAL
     Route: 048
     Dates: start: 20030401
  4. ALL OTHER THERAPEUTIC PRODUCTS (ALL OTHER THERAPEUTIC PRODUCTS) [Suspect]

REACTIONS (7)
  - DISEASE RECURRENCE [None]
  - DRUG INEFFECTIVE [None]
  - DYSPNOEA [None]
  - FACIAL PAIN [None]
  - SINUS DISORDER [None]
  - SINUS HEADACHE [None]
  - SINUSITIS [None]
